FAERS Safety Report 18498610 (Version 1)
Quarter: 2020Q4

REPORT INFORMATION
  Report Type: Spontaneous
  Country: US (occurrence: US)
  Receive Date: 20201112
  Receipt Date: 20201112
  Transmission Date: 20210114
  Serious: Yes (Hospitalization)
  Sender: FDA-Public Use
  Company Number: US-FRESENIUS KABI-FK202011997

PATIENT
  Sex: Male

DRUGS (7)
  1. LEUCOVORIN CALCIUM (MANUFACTURER UNKNOWN) [Suspect]
     Active Substance: LEUCOVORIN CALCIUM
     Dosage: AFTER 4 MONTHS OF CAPECITABINE MONOTHERAPY, BEGAN COMBINATION THERAPY WITH CAPECITABINE AND FOLFOX
     Route: 042
     Dates: start: 2020
  2. LEUCOVORIN CALCIUM (MANUFACTURER UNKNOWN) [Suspect]
     Active Substance: LEUCOVORIN CALCIUM
     Indication: GASTRIC CANCER
     Dosage: EVERY 2 WEEKS?FOLFOX REGIMEN
     Route: 042
     Dates: start: 202003, end: 2020
  3. FLUOROURACIL. [Suspect]
     Active Substance: FLUOROURACIL
     Indication: GASTRIC CANCER
     Dosage: PART OF FOLFOX
     Route: 065
     Dates: start: 202003, end: 2020
  4. OXALIPLATIN. [Suspect]
     Active Substance: OXALIPLATIN
     Indication: GASTRIC CANCER
     Dosage: PART OF FOLFOX
     Route: 065
     Dates: start: 202003, end: 2020
  5. CAPECITABINE. [Suspect]
     Active Substance: CAPECITABINE
     Indication: PRODUCT USED FOR UNKNOWN INDICATION
     Route: 065
     Dates: start: 2020
  6. FLUOROURACIL. [Suspect]
     Active Substance: FLUOROURACIL
     Dosage: AFTER 4 MONTHS OF CAPECITABINE MONOTHERAPY, BEGAN COMBINATION THERAPY WITH CAPECITABINE AND FOLFOX
     Route: 065
     Dates: start: 2020
  7. OXALIPLATIN. [Suspect]
     Active Substance: OXALIPLATIN
     Dosage: AFTER 4 MONTHS OF CAPECITABINE MONOTHERAPY, BEGAN COMBINATION THERAPY WITH CAPECITABINE AND FOLFOX
     Route: 065
     Dates: start: 2020

REACTIONS (5)
  - Fatigue [Unknown]
  - Nausea [Recovering/Resolving]
  - Pneumonia [Unknown]
  - Decreased appetite [Recovering/Resolving]
  - Asthenia [Unknown]

NARRATIVE: CASE EVENT DATE: 20201014
